FAERS Safety Report 18860622 (Version 3)
Quarter: 2021Q1

REPORT INFORMATION
  Report Type: Spontaneous
  Country: US (occurrence: US)
  Receive Date: 20210208
  Receipt Date: 20210216
  Transmission Date: 20210420
  Serious: No
  Sender: FDA-Public Use
  Company Number: US-PFIZER INC-2021081152

PATIENT
  Sex: Female
  Weight: 74.84 kg

DRUGS (1)
  1. RELPAX [Suspect]
     Active Substance: ELETRIPTAN HYDROBROMIDE
     Indication: MIGRAINE
     Dosage: 40 MG, AS NEEDED ONE TABLET AT ONSET OF MIGRAINE BY MOUTH; ONE TABLET IF NEEDED 2 HOURS LATER
     Route: 048

REACTIONS (1)
  - No adverse event [Unknown]
